FAERS Safety Report 20508876 (Version 3)
Quarter: 2022Q3

REPORT INFORMATION
  Report Type: Spontaneous
  Country: IT (occurrence: IT)
  Receive Date: 20220223
  Receipt Date: 20220706
  Transmission Date: 20221026
  Serious: Yes (Other)
  Sender: FDA-Public Use
  Company Number: IT-PFIZER INC-202200276822

PATIENT
  Age: 17 Year
  Sex: Male

DRUGS (1)
  1. METHOTREXATE [Suspect]
     Active Substance: METHOTREXATE
     Dosage: UNK (FIRST HIGH-DOSE METHOTREXATE COURSE OF THE CONSOLIDATION PHASE)

REACTIONS (1)
  - Nephropathy toxic [Unknown]
